FAERS Safety Report 10172019 (Version 1)
Quarter: 2014Q2

REPORT INFORMATION
  Report Type: Spontaneous
  Country: US (occurrence: US)
  Receive Date: 20140515
  Receipt Date: 20140515
  Transmission Date: 20141212
  Serious: No
  Sender: FDA-Public Use
  Company Number: US-PFIZER INC-2014128483

PATIENT
  Sex: Female

DRUGS (2)
  1. LYRICA [Suspect]
     Indication: INSOMNIA
     Dosage: UNK
  2. LYRICA [Suspect]
     Indication: RESTLESS LEGS SYNDROME

REACTIONS (2)
  - Off label use [Unknown]
  - Therapeutic response changed [Unknown]
